APPROVED DRUG PRODUCT: OMEPRAZOLE
Active Ingredient: OMEPRAZOLE
Strength: 20MG
Dosage Form/Route: CAPSULE, DELAYED REL PELLETS;ORAL
Application: A205070 | Product #002
Applicant: PHARMOBEDIENT CONSULTING LLC
Approved: Jun 29, 2018 | RLD: No | RS: No | Type: DISCN